FAERS Safety Report 24362136 (Version 2)
Quarter: 2024Q4

REPORT INFORMATION
  Report Type: Report from Study
  Country: US (occurrence: US)
  Receive Date: 20240925
  Receipt Date: 20241004
  Transmission Date: 20250115
  Serious: No
  Sender: LUNDBECK
  Company Number: US-LUNDBECK-DKLU4004101

PATIENT

DRUGS (12)
  1. VYEPTI [Suspect]
     Active Substance: EPTINEZUMAB-JJMR
     Indication: Migraine
     Dosage: 300 MILLIGRAM
     Route: 041
     Dates: start: 20240613
  2. VYEPTI [Suspect]
     Active Substance: EPTINEZUMAB-JJMR
     Indication: Migraine without aura
  3. ATENOLOL [Concomitant]
     Active Substance: ATENOLOL
     Indication: Product used for unknown indication
  4. BACLOFEN [Concomitant]
     Active Substance: BACLOFEN
  5. CLONAZEPAM [Concomitant]
     Active Substance: CLONAZEPAM
  6. DIAZEPAM [Concomitant]
     Active Substance: DIAZEPAM
  7. DOXEPIN [Concomitant]
     Active Substance: DOXEPIN
  8. LEVOTHYROXINE [Concomitant]
     Active Substance: LEVOTHYROXINE
  9. LIOTHYRONINE [Concomitant]
     Active Substance: LIOTHYRONINE
  10. LUNESTA [Concomitant]
     Active Substance: ESZOPICLONE
  11. PROGESTERONE [Concomitant]
     Active Substance: PROGESTERONE
  12. REYVOW [Concomitant]
     Active Substance: LASMIDITAN

REACTIONS (1)
  - Drug ineffective [Not Recovered/Not Resolved]
